FAERS Safety Report 7608100-X (Version None)
Quarter: 2011Q3

REPORT INFORMATION
  Report Type: 
  Country: None (occurrence: None)
  Receive Date: 20110706
  Receipt Date: 20110624
  Transmission Date: 20111222
  Serious: Yes (Other)
  Sender: FDA-Public Use
  Company Number: 2011SP029650

PATIENT
  Age: 18 Year
  Sex: Male

DRUGS (2)
  1. SAPHRIS [Suspect]
     Indication: PRODUCT USED FOR UNKNOWN INDICATION
     Dosage: 5 MG; BID
  2. RISPERDAL [Concomitant]

REACTIONS (4)
  - OROPHARYNGEAL BLISTERING [None]
  - BACTERIAL INFECTION [None]
  - VIRAL INFECTION [None]
  - LARYNGOSPASM [None]
